FAERS Safety Report 19479966 (Version 1)
Quarter: 2021Q2

REPORT INFORMATION
  Report Type: Spontaneous
  Country: US (occurrence: US)
  Receive Date: 20210630
  Receipt Date: 20210630
  Transmission Date: 20210717
  Serious: No
  Sender: FDA-Public Use
  Company Number: US-009507513-2106USA006848

PATIENT
  Sex: Female

DRUGS (2)
  1. JANUMET [Suspect]
     Active Substance: METFORMIN HYDROCHLORIDE\SITAGLIPTIN PHOSPHATE
     Dosage: TWICE DAILY
     Route: 048
  2. JANUMET [Suspect]
     Active Substance: METFORMIN HYDROCHLORIDE\SITAGLIPTIN PHOSPHATE
     Indication: TYPE 2 DIABETES MELLITUS
     Dosage: 0.5 DOSAGE FORM TWICE DAILY
     Route: 048
     Dates: start: 2011

REACTIONS (2)
  - Nausea [Not Recovered/Not Resolved]
  - Wrong technique in product usage process [Unknown]
